FAERS Safety Report 8549225-4 (Version None)
Quarter: 2012Q3

REPORT INFORMATION
  Report Type: 
  Country: None (occurrence: None)
  Receive Date: 20120730
  Receipt Date: 20120724
  Transmission Date: 20120928
  Serious: Yes (Death)
  Sender: FDA-Public Use
  Company Number: US-JNJFOC-20120712349

PATIENT
  Age: 48 Year
  Sex: Female

DRUGS (1)
  1. APAP/DPH [Suspect]
     Indication: PRODUCT USED FOR UNKNOWN INDICATION
     Dosage: 75G/37.5G

REACTIONS (11)
  - HEPATOTOXICITY [None]
  - OVERDOSE [None]
  - HYPERTENSION [None]
  - SOMNOLENCE [None]
  - TACHYCARDIA [None]
  - MENTAL STATUS CHANGES [None]
  - CARDIOVASCULAR DISORDER [None]
  - GASTROINTESTINAL DISORDER [None]
  - VOMITING [None]
  - NERVOUS SYSTEM DISORDER [None]
  - LETHARGY [None]
